FAERS Safety Report 4569239-9 (Version None)
Quarter: 2005Q1

REPORT INFORMATION
  Report Type: 
  Country: None (occurrence: None)
  Receive Date: 20050203
  Receipt Date: 20041115
  Transmission Date: 20050727
  Serious: Yes (Other)
  Sender: FDA-Public Use
  Company Number: AU-BRISTOL-MYERS SQUIBB COMPANY-12768024

PATIENT
  Age: 25 Year
  Sex: Female
  Weight: 51 kg

DRUGS (7)
  1. ABILIFY [Suspect]
     Indication: SCHIZOPHRENIA
     Dosage: DOSING TO BE CONFIRMED.
     Route: 048
     Dates: start: 20040621, end: 20040824
  2. EFFEXOR XR [Concomitant]
     Indication: DEPRESSION
     Dates: start: 20040107
  3. OLANZAPINE [Concomitant]
     Indication: SCHIZOPHRENIA
     Dosage: 2-5 MG
     Route: 048
     Dates: start: 20040501, end: 20040708
  4. HALOPERIDOL [Concomitant]
     Indication: SCHIZOPHRENIA
     Dates: start: 20040801
  5. DICLOXACILLIN [Concomitant]
     Indication: IMPETIGO
     Dates: start: 20040410, end: 20040603
  6. ALPRAZOLAM (GEN) [Concomitant]
     Indication: AGITATION
     Dates: start: 20040501, end: 20040515
  7. VENLAFAXINE HCL [Concomitant]
     Indication: DEPRESSION
     Dates: start: 20040107

REACTIONS (6)
  - ABORTION INDUCED [None]
  - KIDNEY MALFORMATION [None]
  - LIMB MALFORMATION [None]
  - PREGNANCY [None]
  - TRISOMY 21 [None]
  - UNIVENTRICULAR HEART [None]
